FAERS Safety Report 8179268-4 (Version None)
Quarter: 2012Q1

REPORT INFORMATION
  Report Type: 
  Country: None (occurrence: None)
  Receive Date: 20120229
  Receipt Date: 20120217
  Transmission Date: 20120608
  Serious: Yes (Other)
  Sender: FDA-Public Use
  Company Number: 2012SP009368

PATIENT
  Sex: Female

DRUGS (4)
  1. PEG-INTRON [Suspect]
     Indication: HEPATITIS C
     Dosage: ;UNK;UNK, ;UNK;UNK
     Dates: start: 20050204, end: 20050805
  2. PEG-INTRON [Suspect]
     Indication: HEPATITIS C
     Dosage: ;UNK;UNK, ;UNK;UNK
     Dates: start: 20120217
  3. RIBAVIRIN [Suspect]
     Indication: HEPATITIS C
     Dosage: ;UNK;UNK, ;UNK;UNK
     Dates: start: 20120217
  4. RIBAVIRIN [Suspect]
     Indication: HEPATITIS C
     Dosage: ;UNK;UNK, ;UNK;UNK
     Dates: start: 20050204, end: 20050805

REACTIONS (1)
  - HEPATIC CIRRHOSIS [None]
